FAERS Safety Report 7972639-8 (Version None)
Quarter: 2011Q4

REPORT INFORMATION
  Report Type: 
  Country: None (occurrence: None)
  Receive Date: 20111213
  Receipt Date: 20111207
  Transmission Date: 20120403
  Serious: Yes (Hospitalization, Other)
  Sender: FDA-Public Use
  Company Number: US-JNJFOC-20100706803

PATIENT

DRUGS (1)
  1. LEVAQUIN [Suspect]
     Indication: CELLULITIS
     Route: 048
     Dates: start: 20080901

REACTIONS (5)
  - DIABETES MELLITUS [None]
  - ADVERSE EVENT [None]
  - TENDON PAIN [None]
  - CARDIAC DISORDER [None]
  - SWELLING [None]
